FAERS Safety Report 6920246-8 (Version None)
Quarter: 2010Q3

REPORT INFORMATION
  Report Type: 
  Country: None (occurrence: None)
  Receive Date: 20100809
  Receipt Date: 20100726
  Transmission Date: 20110219
  Serious: Yes (Hospitalization)
  Sender: FDA-Public Use
  Company Number: CLOF-10413

PATIENT
  Age: 17 Year
  Sex: Male
  Weight: 40 kg

DRUGS (18)
  1. CLOFARABINE (CLOFARABINE) [Suspect]
     Indication: ACUTE LYMPHOCYTIC LEUKAEMIA
     Dosage: 42 MG, QDX5, INTRAVENOUS
     Route: 042
     Dates: start: 20061127, end: 20061201
  2. ETOPOSIDE [Suspect]
     Indication: ACUTE LYMPHOCYTIC LEUKAEMIA
     Dosage: 140 MG, QDX5, INTRAVENOUS
     Route: 042
     Dates: start: 20061127, end: 20061201
  3. CYCLOPHOSPHAMIDE [Suspect]
     Indication: ACUTE LYMPHOCYTIC LEUKAEMIA
     Dosage: 615 MG, QDX5, INTRAVENOUS
     Route: 042
     Dates: start: 20061127, end: 20061201
  4. BACTRIM [Concomitant]
  5. POTASSIUM CHLORIDE [Concomitant]
  6. VALTREX [Concomitant]
  7. COLACE (DOCUSATE SODIUM) [Concomitant]
  8. MYLANTA (MAGNESIUM HYDROXIDE, ALUMINIUM HYDROXIDE GEL, DRIED, SIMETICO [Concomitant]
  9. OXYCONTIN [Concomitant]
  10. DAPSONE [Concomitant]
  11. AMBISOME [Concomitant]
  12. FILGRASTIM (FILGRASTIM) [Concomitant]
  13. AZTREONAM (AZTREONAM) [Concomitant]
  14. ACETAMINOPHEN [Concomitant]
  15. HYDROCORTONE [Concomitant]
  16. BENADRYL [Concomitant]
  17. OXYCODONE HCL [Concomitant]
  18. ALBUTEROL [Concomitant]

REACTIONS (19)
  - ACUTE LYMPHOCYTIC LEUKAEMIA [None]
  - BLOOD GLUCOSE INCREASED [None]
  - BLOOD PHOSPHORUS DECREASED [None]
  - BLOOD PRESSURE DECREASED [None]
  - BONE MARROW FAILURE [None]
  - CAECITIS [None]
  - DECREASED APPETITE [None]
  - DISEASE PROGRESSION [None]
  - DIZZINESS [None]
  - ENTEROBACTER BACTERAEMIA [None]
  - FEBRILE NEUTROPENIA [None]
  - GINGIVITIS [None]
  - LACTOBACILLUS INFECTION [None]
  - MALAISE [None]
  - MUCOSAL INFLAMMATION [None]
  - ORAL PAIN [None]
  - OROPHARYNGEAL PAIN [None]
  - RESPIRATORY TRACT INFECTION FUNGAL [None]
  - STOMATITIS [None]
